FAERS Safety Report 11048088 (Version 1)
Quarter: 2015Q2

REPORT INFORMATION
  Report Type: Spontaneous
  Country: US (occurrence: None)
  Receive Date: 20150417
  Receipt Date: 20150417
  Transmission Date: 20150821
  Serious: No
  Sender: FDA-Public Use
  Company Number: None

PATIENT
  Age: 25 Year
  Sex: Female
  Weight: 57.61 kg

DRUGS (4)
  1. BUTTER OIL/FERMENTED COD LIVER BLEND [Concomitant]
  2. NUVARING [Concomitant]
     Active Substance: ETHINYL ESTRADIOL\ETONOGESTREL
  3. DOXYCYCLINE HYCLATE. [Suspect]
     Active Substance: DOXYCYCLINE HYCLATE
     Indication: DERMATITIS
     Dosage: 1 PILL
     Route: 048
     Dates: start: 20150217, end: 20150415
  4. BIOTIN [Concomitant]
     Active Substance: BIOTIN

REACTIONS (6)
  - Headache [None]
  - Discomfort [None]
  - Influenza like illness [None]
  - Eye disorder [None]
  - Lymphoedema [None]
  - Diarrhoea [None]

NARRATIVE: CASE EVENT DATE: 20150327
